FAERS Safety Report 10215890 (Version 1)
Quarter: 2014Q2

REPORT INFORMATION
  Report Type: Spontaneous
  Country: IN (occurrence: None)
  Receive Date: 20140602
  Receipt Date: 20140602
  Transmission Date: 20141212
  Serious: Yes (Hospitalization)
  Sender: FDA-Public Use
  Company Number: IPC201405-000251

PATIENT
  Age: 26 Year
  Sex: Female
  Weight: 50 kg

DRUGS (4)
  1. FUROSEMIDE [Suspect]
     Route: 042
  2. OXYGEN [Concomitant]
  3. DIGOXIN [Concomitant]
  4. MORPHINE [Concomitant]

REACTIONS (4)
  - Exposure during pregnancy [None]
  - Oligohydramnios [None]
  - Forceps delivery [None]
  - Wound dehiscence [None]
